FAERS Safety Report 20002400 (Version 5)
Quarter: 2022Q1

REPORT INFORMATION
  Report Type: Spontaneous
  Country: US (occurrence: US)
  Receive Date: 20211027
  Receipt Date: 20220307
  Transmission Date: 20220423
  Serious: Yes (Other)
  Sender: FDA-Public Use
  Company Number: US-BAYER-2021A236803

PATIENT
  Age: 55 Year
  Sex: Male

DRUGS (4)
  1. KOGENATE FS [Suspect]
     Active Substance: ANTIHEMOPHILIC FACTOR, HUMAN RECOMBINANT
     Indication: Factor VIII deficiency
     Dosage: 3000 U, BIW
     Route: 042
     Dates: start: 20211001
  2. KOGENATE FS [Suspect]
     Active Substance: ANTIHEMOPHILIC FACTOR, HUMAN RECOMBINANT
     Indication: Factor VIII deficiency
     Dosage: 3000 U, ONCE ( USE EXTRA DOSE FOR BLEED ON BOTH ANKLE)
     Route: 042
  3. KOGENATE FS [Suspect]
     Active Substance: ANTIHEMOPHILIC FACTOR, HUMAN RECOMBINANT
     Indication: Factor VIII deficiency
     Dosage: UNK,  COUPLE OF EXTRA DOSES FOR THE RIGHT WRIST BLEED TREATMENT
  4. KOGENATE FS [Suspect]
     Active Substance: ANTIHEMOPHILIC FACTOR, HUMAN RECOMBINANT
     Indication: Factor VIII deficiency
     Dosage: 1-2 EXTRA DOSES FOR THE MILD BLEED ON RIGHT WRIST, HERNIATED DISKS IN NECK AND NECK BLEED TREATMENT

REACTIONS (6)
  - Haemarthrosis [Recovered/Resolved]
  - Haemarthrosis [None]
  - Arthropathy [None]
  - Haemarthrosis [None]
  - Haemarthrosis [None]
  - Intervertebral disc protrusion [None]

NARRATIVE: CASE EVENT DATE: 20211228
